FAERS Safety Report 17345763 (Version 1)
Quarter: 2020Q1

REPORT INFORMATION
  Report Type: Spontaneous
  Country: US (occurrence: US)
  Receive Date: 20200129
  Receipt Date: 20200129
  Transmission Date: 20200409
  Serious: Yes (Other)
  Sender: FDA-Public Use
  Company Number: US-BAYER-2020-012576

PATIENT
  Age: 3 Decade
  Sex: Female

DRUGS (1)
  1. MIRENA [Suspect]
     Active Substance: LEVONORGESTREL
     Indication: CONTRACEPTION
     Dosage: 20 MCG/24HR, CONT
     Route: 015
     Dates: start: 20191008, end: 20191210

REACTIONS (9)
  - Device expulsion [Recovered/Resolved]
  - Pelvic discomfort [Not Recovered/Not Resolved]
  - Mood swings [None]
  - Genital haemorrhage [None]
  - Vaginal discharge [Not Recovered/Not Resolved]
  - Genital infection bacterial [None]
  - Abdominal pain lower [Not Recovered/Not Resolved]
  - Pelvic pain [None]
  - Headache [None]

NARRATIVE: CASE EVENT DATE: 2019
